FAERS Safety Report 17146003 (Version 1)
Quarter: 2019Q4

REPORT INFORMATION
  Report Type: Report from Study
  Country: IT (occurrence: IT)
  Receive Date: 20191212
  Receipt Date: 20191212
  Transmission Date: 20200122
  Serious: Yes (Other)
  Sender: FDA-Public Use
  Company Number: IT-ACCORD-164969

PATIENT
  Age: 91 Year
  Sex: Male

DRUGS (1)
  1. CLOPIDOGREL [Suspect]
     Active Substance: CLOPIDOGREL BISULFATE
     Indication: PRODUCT USED FOR UNKNOWN INDICATION
     Route: 048

REACTIONS (1)
  - Urethral haemorrhage [Recovering/Resolving]

NARRATIVE: CASE EVENT DATE: 20191104
